FAERS Safety Report 4548411-8 (Version None)
Quarter: 2005Q1

REPORT INFORMATION
  Report Type: 
  Country: None (occurrence: None)
  Receive Date: 20050106
  Receipt Date: 20041220
  Transmission Date: 20050727
  Serious: Yes (Other)
  Sender: FDA-Public Use
  Company Number: USA041286552

PATIENT
  Age: 16 Year
  Sex: Male

DRUGS (1)
  1. STRATTERA [Suspect]
     Dosage: 90 MG DAY
     Dates: start: 20030701

REACTIONS (2)
  - ABDOMINAL PAIN UPPER [None]
  - TREATMENT NONCOMPLIANCE [None]
